FAERS Safety Report 16799648 (Version 1)
Quarter: 2019Q3

REPORT INFORMATION
  Report Type: Spontaneous
  Country: US (occurrence: US)
  Receive Date: 20190912
  Receipt Date: 20190912
  Transmission Date: 20191005
  Serious: No
  Sender: FDA-Public Use
  Company Number: US-TEVA-2019-US-1105710

PATIENT
  Sex: Female

DRUGS (1)
  1. METHYLPHENIDATE HYDROCHLORIDE EXTENDED-RELEASE TABLETS TEVA [Suspect]
     Active Substance: METHYLPHENIDATE HYDROCHLORIDE
     Indication: ATTENTION DEFICIT/HYPERACTIVITY DISORDER
     Dosage: EXTENDED-RELEASE TABLETS, DOSE STRENGTH 54
     Route: 065
     Dates: start: 2013

REACTIONS (5)
  - Disturbance in attention [Unknown]
  - Drug ineffective [Unknown]
  - Heart rate increased [Unknown]
  - Product substitution issue [Unknown]
  - Anxiety [Unknown]

NARRATIVE: CASE EVENT DATE: 201908
